FAERS Safety Report 25393249 (Version 1)
Quarter: 2025Q2

REPORT INFORMATION
  Report Type: Spontaneous
  Country: IN (occurrence: IN)
  Receive Date: 20250604
  Receipt Date: 20250604
  Transmission Date: 20250717
  Serious: Yes (Life-Threatening, Hospitalization, Other)
  Sender: ENDO
  Company Number: IN-ENDO USA, INC.-2025-001292

PATIENT
  Age: 68 Year
  Sex: Male

DRUGS (1)
  1. BACLOFEN [Suspect]
     Active Substance: BACLOFEN
     Indication: Hiccups
     Route: 065
     Dates: start: 20250202, end: 202502

REACTIONS (6)
  - Toxicity to various agents [Recovered/Resolved]
  - Rebound psychosis [Recovered/Resolved]
  - Toxic encephalopathy [Recovered/Resolved]
  - Chest X-ray abnormal [Recovered/Resolved]
  - Antibiotic therapy [Recovered/Resolved]
  - Off label use [Recovered/Resolved]

NARRATIVE: CASE EVENT DATE: 20250201
